FAERS Safety Report 7647633-7 (Version None)
Quarter: 2011Q3

REPORT INFORMATION
  Report Type: 
  Country: None (occurrence: None)
  Receive Date: 20110801
  Receipt Date: 20110801
  Transmission Date: 20111222
  Serious: Yes (Other)
  Sender: FDA-Public Use
  Company Number: None

PATIENT
  Sex: Female

DRUGS (1)
  1. ENBREL [Suspect]
     Indication: RHEUMATOID ARTHRITIS
     Dosage: 50MG
     Route: 058
     Dates: start: 20110304, end: 20110722

REACTIONS (3)
  - HYPERSENSITIVITY [None]
  - RASH [None]
  - OEDEMA PERIPHERAL [None]
